FAERS Safety Report 4933242-7 (Version None)
Quarter: 2006Q1

REPORT INFORMATION
  Report Type: 
  Country: None (occurrence: None)
  Receive Date: 20060306
  Receipt Date: 20060111
  Transmission Date: 20060701
  Serious: Yes (Death, Hospitalization)
  Sender: FDA-Public Use
  Company Number: US-MERCK-0601USA01312

PATIENT
  Age: 73 Year
  Sex: Female
  Weight: 57 kg

DRUGS (12)
  1. VIOXX [Suspect]
     Indication: BACK PAIN
     Route: 048
     Dates: start: 20010501, end: 20020801
  2. VIOXX [Suspect]
     Route: 048
  3. VIOXX [Suspect]
     Indication: ARTHRALGIA
     Route: 048
     Dates: start: 20010501, end: 20020801
  4. VIOXX [Suspect]
     Route: 048
  5. TYLENOL (CAPLET) [Concomitant]
     Route: 065
  6. PAXIL [Concomitant]
     Route: 048
  7. LOPRESSOR [Concomitant]
     Route: 065
  8. PREVACID [Concomitant]
     Route: 048
  9. PREMARIN [Concomitant]
     Route: 048
  10. ZIAC [Concomitant]
     Route: 048
  11. PROPRANOLOL HYDROCHLORIDE [Concomitant]
     Route: 048
  12. MIACALCIN [Concomitant]
     Route: 065

REACTIONS (22)
  - ACUTE MYOCARDIAL INFARCTION [None]
  - BRAIN STEM HAEMORRHAGE [None]
  - BURSITIS [None]
  - CARDIAC ARREST [None]
  - CEREBRAL HAEMORRHAGE [None]
  - CEREBROVASCULAR ACCIDENT [None]
  - CORONARY ARTERY DISEASE [None]
  - DEMENTIA [None]
  - GASTROINTESTINAL HAEMORRHAGE [None]
  - HIATUS HERNIA [None]
  - HYPERLIPIDAEMIA [None]
  - HYPOVOLAEMIC SHOCK [None]
  - INTESTINAL ISCHAEMIA [None]
  - ISCHAEMIC HEPATITIS [None]
  - LIMB DISCOMFORT [None]
  - METABOLIC ACIDOSIS [None]
  - OSTEOARTHRITIS [None]
  - PAIN [None]
  - PULMONARY CONGESTION [None]
  - RENAL FAILURE ACUTE [None]
  - SINUSITIS [None]
  - SUBARACHNOID HAEMORRHAGE [None]
